FAERS Safety Report 6983155-4 (Version None)
Quarter: 2010Q3

REPORT INFORMATION
  Report Type: 
  Country: None (occurrence: None)
  Receive Date: 20100914
  Receipt Date: 20100720
  Transmission Date: 20110219
  Serious: Yes (Other)
  Sender: FDA-Public Use
  Company Number: US-PFIZER INC-2010076713

PATIENT
  Sex: Female
  Weight: 113.38 kg

DRUGS (4)
  1. LYRICA [Suspect]
     Indication: FIBROMYALGIA
     Dosage: 75 MG, 2X/DAY
     Route: 048
     Dates: start: 20090101
  2. ATENOLOL [Concomitant]
     Indication: HYPERTENSION
     Dosage: UNK
  3. LIPITOR [Concomitant]
     Dosage: UNK
  4. DARVOCET [Concomitant]
     Indication: PAIN
     Dosage: UNK

REACTIONS (5)
  - DRUG INEFFECTIVE [None]
  - NEURALGIA [None]
  - PAIN [None]
  - PARAESTHESIA [None]
  - WEIGHT INCREASED [None]
